FAERS Safety Report 8141847-8 (Version None)
Quarter: 2012Q1

REPORT INFORMATION
  Report Type: 
  Country: None (occurrence: None)
  Receive Date: 20120216
  Receipt Date: 20120206
  Transmission Date: 20120608
  Serious: Yes (Death)
  Sender: FDA-Public Use
  Company Number: US-ELI_LILLY_AND_COMPANY-US200903004947

PATIENT
  Sex: Female

DRUGS (1)
  1. FORTEO [Suspect]
     Dosage: 20 UG, QD
     Route: 058

REACTIONS (5)
  - DRUG DISPENSING ERROR [None]
  - TREMOR [None]
  - CATARACT [None]
  - VISUAL IMPAIRMENT [None]
  - DEATH [None]
